FAERS Safety Report 7864252-8 (Version None)
Quarter: 2011Q4

REPORT INFORMATION
  Report Type: 
  Country: None (occurrence: None)
  Receive Date: 20111028
  Receipt Date: 20111023
  Transmission Date: 20120403
  Serious: Yes (Hospitalization, Other)
  Sender: FDA-Public Use
  Company Number: GB-B.I. PHARMACEUTICALS,INC./RIDGEFIELD-2011-UK-01143UK

PATIENT
  Sex: Female
  Weight: 66 kg

DRUGS (6)
  1. PRADAXA [Suspect]
     Indication: MEDICAL DEVICE REMOVAL
     Dosage: 150 MG
     Route: 048
     Dates: start: 20111017, end: 20111021
  2. ACETAMINOPHEN [Concomitant]
     Indication: ANALGESIC THERAPY
     Dosage: 4 G
     Route: 048
  3. CALCIUM CARBONATE [Concomitant]
     Indication: MINERAL SUPPLEMENTATION
     Dosage: 2 ANZ
     Route: 048
  4. LACTULOSE [Concomitant]
     Indication: CONSTIPATION
     Dosage: 10 ML
     Route: 048
  5. NATRILIX SR [Concomitant]
     Indication: HYPERTENSION
     Dosage: 1.5 MG
     Route: 048
  6. MORPHGESIC SR [Concomitant]
     Indication: ANALGESIC THERAPY
     Dosage: 20 MG
     Route: 048

REACTIONS (3)
  - HAEMATOMA [None]
  - OFF LABEL USE [None]
  - DEEP VEIN THROMBOSIS [None]
